FAERS Safety Report 23986253 (Version 3)
Quarter: 2024Q2

REPORT INFORMATION
  Report Type: Spontaneous
  Country: IT (occurrence: IT)
  Receive Date: 20240618
  Receipt Date: 20240627
  Transmission Date: 20240716
  Serious: Yes (Hospitalization)
  Sender: FDA-Public Use
  Company Number: IT-GILEAD-2024-0675182

PATIENT
  Age: 68 Year
  Sex: Male

DRUGS (11)
  1. VORICONAZOLE [Suspect]
     Active Substance: VORICONAZOLE
     Indication: Candida infection
     Dosage: 4 MILLIGRAM/KILOGRAM, BID
     Route: 048
     Dates: start: 2023, end: 20230816
  2. VORICONAZOLE [Suspect]
     Active Substance: VORICONAZOLE
     Indication: Systemic candida
  3. VORICONAZOLE [Suspect]
     Active Substance: VORICONAZOLE
     Indication: Antifungal treatment
  4. AMBISOME [Suspect]
     Active Substance: AMPHOTERICIN B
     Indication: Candida infection
     Dosage: 10 MILLIGRAM/KILOGRAM, 3XW (10 MG/KG I.V THREE TIMES A WEEK)
     Route: 042
     Dates: start: 2023, end: 20230816
  5. AMPHOTERICIN B [Suspect]
     Active Substance: AMPHOTERICIN B
     Indication: Systemic candida
     Dosage: 10 MILLIGRAM/KILOGRAM, TID (30 MILLIGRAM PER KILOGRAM, QD)
     Route: 042
  6. AMPHOTERICIN B [Suspect]
     Active Substance: AMPHOTERICIN B
     Indication: Antifungal treatment
  7. ANIDULAFUNGIN [Suspect]
     Active Substance: ANIDULAFUNGIN
     Indication: Systemic candida
     Dosage: 200 MILLIGRAM
     Route: 065
     Dates: start: 2023, end: 2023
  8. REZAFUNGIN [Suspect]
     Active Substance: REZAFUNGIN
     Indication: Systemic candida
     Dosage: 200 MILLIGRAM, QW
     Route: 065
  9. REZAFUNGIN [Concomitant]
     Active Substance: REZAFUNGIN
     Indication: Systemic candida
     Dosage: 400 MILLIGRAM (400 MG I.V. OF REZAFUNGIN)
     Route: 042
     Dates: start: 20230816
  10. REZAFUNGIN [Concomitant]
     Active Substance: REZAFUNGIN
     Indication: Candida infection
  11. ANIDULAFUNGIN [Concomitant]
     Active Substance: ANIDULAFUNGIN
     Indication: Systemic candida
     Dosage: 100 MILLIGRAM, QD
     Route: 042

REACTIONS (6)
  - Electrocardiogram QT prolonged [Recovered/Resolved]
  - Hallucination [Recovered/Resolved]
  - Hypokalaemia [Recovered/Resolved]
  - Insomnia [Recovered/Resolved]
  - Drug intolerance [Unknown]
  - Off label use [Recovered/Resolved]

NARRATIVE: CASE EVENT DATE: 20230101
